FAERS Safety Report 8063803-0 (Version None)
Quarter: 2012Q1

REPORT INFORMATION
  Report Type: 
  Country: None (occurrence: None)
  Receive Date: 20120123
  Receipt Date: 20120109
  Transmission Date: 20120608
  Serious: Yes (Death)
  Sender: FDA-Public Use
  Company Number: US-MERCK-1201USA02201

PATIENT
  Age: 45 Year
  Sex: Male

DRUGS (7)
  1. VALPROIC ACID [Suspect]
     Route: 048
  2. ESOMEPRAZOLE [Suspect]
     Route: 048
  3. PRINIVIL [Suspect]
     Route: 048
  4. AMLODIPINE BESYLATE AND ATORVASTATIN CALCIUM [Suspect]
     Route: 048
  5. QUETIAPINE FUMARATE [Suspect]
     Route: 048
  6. DIAZEPAM [Suspect]
     Route: 048
  7. DULOXETIME HYDROCHLORIDE [Suspect]
     Route: 048

REACTIONS (2)
  - COMPLETED SUICIDE [None]
  - OVERDOSE [None]
